FAERS Safety Report 23254674 (Version 1)
Quarter: 2023Q4

REPORT INFORMATION
  Report Type: Spontaneous
  Country: US (occurrence: US)
  Receive Date: 20231203
  Receipt Date: 20231203
  Transmission Date: 20240110
  Serious: Yes (Other)
  Sender: FDA-Public Use
  Company Number: US-MLMSERVICE-20231120-4665663-2

PATIENT
  Age: 2 Decade
  Sex: Female

DRUGS (4)
  1. PREDNISONE [Suspect]
     Active Substance: PREDNISONE
     Indication: Immunosuppressant drug therapy
     Dosage: 15.8 MILLIGRAM/SQ. METER, ONCE A DAY (OF HYDROCORTISONE EQUIVALENT  )
     Route: 065
     Dates: start: 2018
  2. PREDNISONE [Suspect]
     Active Substance: PREDNISONE
     Indication: Pancreas transplant rejection
  3. EVEROLIMUS [Concomitant]
     Active Substance: EVEROLIMUS
     Indication: Immunosuppressant drug therapy
     Dosage: UNK
     Route: 065
     Dates: start: 2018
  4. TACROLIMUS [Concomitant]
     Active Substance: TACROLIMUS
     Indication: Immunosuppressant drug therapy
     Dosage: UNK
     Route: 065
     Dates: start: 2018

REACTIONS (1)
  - Hyperglycaemia [Unknown]
